FAERS Safety Report 9170276 (Version 1)
Quarter: 2013Q1

REPORT INFORMATION
  Report Type: Spontaneous
  Country: US (occurrence: None)
  Receive Date: 20130315
  Receipt Date: 20130315
  Transmission Date: 20140127
  Serious: Yes (Disabling, Other)
  Sender: FDA-Public Use
  Company Number: None

PATIENT
  Age: 52 Year
  Sex: Male
  Weight: 81.65 kg

DRUGS (1)
  1. CIPRO [Suspect]
     Route: 048
     Dates: start: 20120524, end: 20120623

REACTIONS (16)
  - Pain [None]
  - Asthenia [None]
  - Bursitis [None]
  - Ligament rupture [None]
  - Cartilage injury [None]
  - Cyst [None]
  - Inflammation [None]
  - Arthralgia [None]
  - Fall [None]
  - Meniscus injury [None]
  - Ligament disorder [None]
  - Arthralgia [None]
  - Burning sensation [None]
  - Photosensitivity reaction [None]
  - Chills [None]
  - Muscle contractions involuntary [None]
